FAERS Safety Report 19888221 (Version 2)
Quarter: 2021Q4

REPORT INFORMATION
  Report Type: Report from Study
  Country: EG (occurrence: EG)
  Receive Date: 20210927
  Receipt Date: 20211201
  Transmission Date: 20220303
  Serious: Yes (Other)
  Sender: FDA-Public Use
  Company Number: EG-NOVARTISPH-NVSC2021EG216972

PATIENT
  Age: 10 Year
  Sex: Female
  Weight: 28 kg

DRUGS (10)
  1. OMNITROPE [Suspect]
     Active Substance: SOMATROPIN
     Indication: Short stature
     Dosage: 0.8 MG, QD
     Route: 058
     Dates: start: 20201121
  2. OMNITROPE [Suspect]
     Active Substance: SOMATROPIN
     Dosage: 0.8 MG, QD
     Route: 058
     Dates: start: 20201121
  3. VITAMIN D [Concomitant]
     Active Substance: VITAMIN D NOS
     Indication: Supplementation therapy
     Dosage: 1 DOSAGE FORM, QD SANSO D3 10,000 (ONLY 2 DAYS/WEEK)
     Route: 048
     Dates: start: 20210920
  4. LEVOTHYROXINE [Concomitant]
     Active Substance: LEVOTHYROXINE
     Indication: Hypothyroidism
     Dosage: UNK (0.5 TAB)
     Route: 048
  5. LEVOTHYROXINE [Concomitant]
     Active Substance: LEVOTHYROXINE
     Dosage: UNK (0.75 TAB)
     Route: 048
  6. LEVOTHYROXINE [Concomitant]
     Active Substance: LEVOTHYROXINE
     Dosage: 1 DF, QD
     Route: 048
  7. LEVOTHYROXINE [Concomitant]
     Active Substance: LEVOTHYROXINE
     Dosage: 2 DF, QD
     Route: 048
     Dates: end: 202109
  8. EUTHYROX [Concomitant]
     Active Substance: LEVOTHYROXINE SODIUM
     Indication: Hypothyroidism
     Dosage: 2 DOSAGE FORM, QD (PER DAY)
     Route: 048
     Dates: start: 202109
  9. EUTHYROX [Concomitant]
     Active Substance: LEVOTHYROXINE SODIUM
     Dosage: 1.5 DOSAGE FORM, QD  (PER ADY DECREASED 2 WEEKS AGO)
     Route: 048
  10. OMEGA 3 [Concomitant]
     Active Substance: CAPSAICIN
     Indication: Supplementation therapy
     Dosage: 1 DOSAGE FORM, QD (FOR ONLY 3 DAYS/WEEK [IN ALTERNATION WITH SANSO D3]
     Route: 048
     Dates: start: 202109

REACTIONS (9)
  - Injection site pain [Not Recovered/Not Resolved]
  - Dyspnoea [Recovering/Resolving]
  - Headache [Recovering/Resolving]
  - Arthralgia [Not Recovered/Not Resolved]
  - Pain in extremity [Not Recovered/Not Resolved]
  - Poor quality device used [Not Recovered/Not Resolved]
  - Product use in unapproved indication [Unknown]
  - Incorrect dose administered [Not Recovered/Not Resolved]
  - Injection site haemorrhage [Not Recovered/Not Resolved]

NARRATIVE: CASE EVENT DATE: 20210201
